FAERS Safety Report 18893360 (Version 1)
Quarter: 2021Q1

REPORT INFORMATION
  Report Type: Spontaneous
  Country: CA (occurrence: CA)
  Receive Date: 20210215
  Receipt Date: 20210215
  Transmission Date: 20210420
  Serious: Yes (Hospitalization)
  Sender: FDA-Public Use
  Company Number: CA-ROCHE-2767299

PATIENT
  Age: 18 Year
  Sex: Female
  Weight: 100 kg

DRUGS (12)
  1. RITUXIMAB. [Suspect]
     Active Substance: RITUXIMAB
     Indication: PRODUCT USED FOR UNKNOWN INDICATION
     Route: 065
  2. ACETAMINOPHEN. [Concomitant]
     Active Substance: ACETAMINOPHEN
  3. AZATHIOPRINE. [Concomitant]
     Active Substance: AZATHIOPRINE
  4. HYDROCORTISONE. [Concomitant]
     Active Substance: HYDROCORTISONE
     Route: 042
  5. KEPPRA [Concomitant]
     Active Substance: LEVETIRACETAM
  6. DIPHENHYDRAMINE. [Concomitant]
     Active Substance: DIPHENHYDRAMINE
  7. INFLECTRA [Suspect]
     Active Substance: INFLIXIMAB-DYYB
     Indication: SARCOIDOSIS
     Route: 042
  8. PREDNISONE. [Concomitant]
     Active Substance: PREDNISONE
  9. DIMENHYDRINATE. [Concomitant]
     Active Substance: DIMENHYDRINATE
  10. SULFATRIM [Concomitant]
     Active Substance: SULFAMETHOXAZOLE\TRIMETHOPRIM
  11. MYCOPHENOLATE MOFETIL. [Concomitant]
     Active Substance: MYCOPHENOLATE MOFETIL
  12. INFLECTRA [Suspect]
     Active Substance: INFLIXIMAB-DYYB
     Route: 042

REACTIONS (10)
  - Pneumonia [Unknown]
  - Off label use [Unknown]
  - Blood pressure increased [Unknown]
  - Cough [Unknown]
  - Haemoptysis [Unknown]
  - Dyspnoea [Unknown]
  - Epistaxis [Unknown]
  - Renal failure [Unknown]
  - Product use in unapproved indication [Unknown]
  - Inappropriate schedule of product administration [Unknown]
